FAERS Safety Report 21667277 (Version 1)
Quarter: 2022Q4

REPORT INFORMATION
  Report Type: Spontaneous
  Country: DE (occurrence: DE)
  Receive Date: 20221201
  Receipt Date: 20221201
  Transmission Date: 20230113
  Serious: Yes (Hospitalization)
  Sender: FDA-Public Use
  Company Number: None

PATIENT
  Age: 38 Year
  Sex: Female
  Weight: 60 kg

DRUGS (6)
  1. PACLITAXEL [Suspect]
     Active Substance: PACLITAXEL
     Indication: Product used for unknown indication
     Dosage: 135 MG /QM, ACCORDING TO THE SCHEME
  2. IFOSFAMIDE [Suspect]
     Active Substance: IFOSFAMIDE
     Indication: Product used for unknown indication
     Dosage: 1600 MG/QM, ACCORDING TO THE SCHEME
  3. ONDANSETRON [Concomitant]
     Active Substance: ONDANSETRON
     Dosage: 8 MG, AS REQUIRED
  4. MORPHINE [Concomitant]
     Active Substance: MORPHINE
     Dosage: 7.59 MG, AS REQUIRED
  5. METAMIZOLE [Concomitant]
     Active Substance: METAMIZOLE
     Dosage: 500 MG, AS REQUIRED
  6. LACTULOSE [Concomitant]
     Active Substance: LACTULOSE
     Dosage: 10 G, AS REQUIRED

REACTIONS (2)
  - Inflammation [Unknown]
  - Abdominal pain upper [Unknown]
